FAERS Safety Report 20126927 (Version 1)
Quarter: 2021Q4

REPORT INFORMATION
  Report Type: Spontaneous
  Country: US (occurrence: None)
  Receive Date: 20211129
  Receipt Date: 20211129
  Transmission Date: 20220304
  Serious: No
  Sender: FDA-Public Use
  Company Number: None

PATIENT
  Sex: Male

DRUGS (1)
  1. KESIMPTA [Suspect]
     Active Substance: OFATUMUMAB
     Indication: Multiple sclerosis
     Dosage: OTHER FREQUENCY : EVERY 28 DAYS;?OTHER ROUTE : UNDER THE SKIN;?
     Route: 050
     Dates: start: 202011

REACTIONS (3)
  - COVID-19 [None]
  - Neuralgia [None]
  - Muscle disorder [None]
